FAERS Safety Report 25930942 (Version 2)
Quarter: 2025Q4

REPORT INFORMATION
  Report Type: Spontaneous
  Country: US (occurrence: US)
  Receive Date: 20251016
  Receipt Date: 20251106
  Transmission Date: 20260117
  Serious: No
  Sender: BRISTOL-MYERS SQUIBB COMPANY
  Company Number: US-BRISTOL-MYERS SQUIBB COMPANY-2025-141681

PATIENT
  Age: 53 Year
  Sex: Female

DRUGS (3)
  1. REVLIMID [Suspect]
     Active Substance: LENALIDOMIDE
     Indication: Plasma cell myeloma
     Route: 048
     Dates: start: 202508
  2. REVLIMID [Suspect]
     Active Substance: LENALIDOMIDE
     Route: 048
     Dates: start: 202508
  3. DARZALEX [Suspect]
     Active Substance: DARATUMUMAB
     Indication: Product used for unknown indication

REACTIONS (8)
  - Burning sensation [Unknown]
  - Palpitations [Unknown]
  - Insomnia [Unknown]
  - Hypoaesthesia [Unknown]
  - Hypoaesthesia oral [Unknown]
  - Hordeolum [Unknown]
  - Somnolence [Unknown]
  - Fatigue [Unknown]
